FAERS Safety Report 6027343-2 (Version None)
Quarter: 2009Q1

REPORT INFORMATION
  Report Type: 
  Country: None (occurrence: None)
  Receive Date: 20090105
  Receipt Date: 20081229
  Transmission Date: 20090719
  Serious: Yes (Other)
  Sender: FDA-Public Use
  Company Number: B0551030A

PATIENT
  Age: 85 Year
  Sex: Female
  Weight: 40 kg

DRUGS (9)
  1. ARIXTRA [Suspect]
     Indication: THROMBOSIS PROPHYLAXIS
     Dosage: 1.5MG PER DAY
     Route: 058
     Dates: start: 20081127, end: 20081201
  2. RIMATIL [Concomitant]
     Dosage: 100MG PER DAY
     Route: 048
  3. PREDNISOLONE [Concomitant]
     Dosage: 3MG PER DAY
     Route: 048
  4. ONEALFA [Concomitant]
     Dosage: .5MG PER DAY
     Route: 048
  5. ALENDRONATE SODIUM [Concomitant]
     Route: 048
  6. BLOPRESS [Concomitant]
     Dosage: 4MG PER DAY
     Route: 048
  7. NITOROL [Concomitant]
     Dosage: 20MG PER DAY
     Route: 048
  8. LOXONIN [Concomitant]
     Route: 048
  9. TRANSFUSION [Concomitant]
     Dates: start: 20081127, end: 20081128

REACTIONS (4)
  - OEDEMA PERIPHERAL [None]
  - PAIN IN EXTREMITY [None]
  - SUBCUTANEOUS HAEMATOMA [None]
  - VASCULAR INJURY [None]
